FAERS Safety Report 5479787-5 (Version None)
Quarter: 2007Q4

REPORT INFORMATION
  Report Type: 
  Country: None (occurrence: None)
  Receive Date: 20071008
  Receipt Date: 20071003
  Transmission Date: 20080405
  Serious: Yes (Death, Hospitalization)
  Sender: FDA-Public Use
  Company Number: US-SANOFI-SYNTHELABO-F03200700148

PATIENT
  Sex: Female

DRUGS (28)
  1. DECADRON [Concomitant]
     Dosage: UNK
     Route: 065
     Dates: start: 20070530
  2. EMEND [Concomitant]
     Dosage: UNK
     Route: 065
     Dates: start: 20070607
  3. SODIUM CHLORIDE [Concomitant]
     Dosage: UNK
     Route: 065
  4. BENADRYL [Concomitant]
     Dosage: UNK
     Route: 065
     Dates: start: 20070501
  5. ONDANSETRON [Concomitant]
     Dosage: UNK
     Route: 065
  6. XALATAN [Concomitant]
     Dosage: UNK
     Route: 047
  7. PHENERGAN HCL [Concomitant]
     Dosage: UNK
     Route: 065
     Dates: start: 20070611
  8. PREVACID [Concomitant]
     Dosage: UNK
     Route: 048
     Dates: start: 20070611
  9. POTASSIUM CHLORIDE [Concomitant]
     Dosage: UNK
     Route: 065
  10. REGLAN [Concomitant]
     Dosage: UNK
     Route: 065
  11. METAMUCIL [Concomitant]
     Dosage: UNK
     Route: 048
  12. MAGNESIUM OXIDE [Concomitant]
     Dosage: UNK
     Route: 048
  13. MAGIC MOUTHWASH [Concomitant]
     Dosage: UNK
     Route: 048
     Dates: start: 20070607
  14. LOTREL [Concomitant]
     Dosage: UNK
     Route: 048
  15. ATIVAN [Concomitant]
     Dosage: UNK
     Route: 065
  16. LOMOTIL [Concomitant]
     Dosage: UNK
     Route: 048
     Dates: start: 20070607
  17. LEVAQUIN [Concomitant]
     Dosage: UNK
     Route: 065
  18. HYDROCODONE [Concomitant]
     Dosage: UNK
     Route: 048
  19. GLUCOSAMINE + CHONDROITIN + MSM [Concomitant]
     Dosage: UNK
     Route: 048
  20. DIFLUCAN [Concomitant]
     Dosage: UNK
     Route: 065
  21. ECOTRIN [Concomitant]
     Dosage: UNK
     Route: 048
  22. FOLINIC ACID [Suspect]
     Indication: COLORECTAL CANCER METASTATIC
     Route: 042
     Dates: start: 20070711, end: 20070711
  23. CENTRUM SILVER [Concomitant]
     Dosage: UNK
     Route: 048
  24. FLUOROURACIL [Suspect]
     Indication: COLORECTAL CANCER METASTATIC
     Route: 042
     Dates: start: 20070711, end: 20070711
  25. ACYCLOVIR [Concomitant]
     Dosage: UNK
     Route: 065
  26. BEVACIZUMAB [Suspect]
     Indication: COLORECTAL CANCER METASTATIC
     Route: 042
     Dates: start: 20070711, end: 20070711
  27. ACTONEL [Concomitant]
     Dosage: UNK
     Route: 048
  28. OXALIPLATIN [Suspect]
     Indication: COLORECTAL CANCER METASTATIC
     Route: 042
     Dates: start: 20070711, end: 20070711

REACTIONS (3)
  - FEBRILE NEUTROPENIA [None]
  - RESPIRATORY FAILURE [None]
  - STOMATITIS [None]
